FAERS Safety Report 15818774 (Version 3)
Quarter: 2019Q1

REPORT INFORMATION
  Report Type: Not Available
  Country: US (occurrence: US)
  Receive Date: 20190113
  Receipt Date: 20190129
  Transmission Date: 20190417
  Serious: No
  Sender: FDA-Public Use
  Company Number: US-NEUROCRINE BIOSCIENCES INC.-2018NBI03691

PATIENT
  Sex: Female

DRUGS (9)
  1. ABILIFY [Concomitant]
     Active Substance: ARIPIPRAZOLE
  2. TOPROL XL [Concomitant]
     Active Substance: METOPROLOL SUCCINATE
  3. SEROQUEL [Suspect]
     Active Substance: QUETIAPINE FUMARATE
     Indication: PRODUCT USED FOR UNKNOWN INDICATION
  4. KLONOPIN [Concomitant]
     Active Substance: CLONAZEPAM
  5. KLONOPIN [Concomitant]
     Active Substance: CLONAZEPAM
  6. INGREZZA [Suspect]
     Active Substance: VALBENAZINE
     Dosage: ONE-HALF OF THE 40 MG CAPSULE
     Dates: start: 20181227
  7. INGREZZA [Suspect]
     Active Substance: VALBENAZINE
     Indication: DYSKINESIA
     Dates: start: 201812, end: 201812
  8. ANAFRINIL [Concomitant]
     Dosage: SPLIT BETWEEN MORNING AND NIGHT AT BEDTIME
  9. COGENTIN [Concomitant]
     Active Substance: BENZTROPINE MESYLATE
     Dosage: AT A LOW DOSAGE

REACTIONS (7)
  - Drug ineffective [None]
  - Nausea [Recovered/Resolved]
  - Wrong technique in product usage process [Unknown]
  - Nightmare [Recovered/Resolved]
  - Vomiting [Recovered/Resolved]
  - Abdominal pain upper [Recovered/Resolved]
  - Heart rate increased [Recovered/Resolved]

NARRATIVE: CASE EVENT DATE: 201812
